FAERS Safety Report 12830490 (Version 2)
Quarter: 2017Q3

REPORT INFORMATION
  Report Type: Spontaneous
  Country: US (occurrence: US)
  Receive Date: 20161007
  Receipt Date: 20170928
  Transmission Date: 20171127
  Serious: No
  Sender: FDA-Public Use
  Company Number: US-SA-2016SA146022

PATIENT
  Age: 39 Year
  Sex: Female

DRUGS (5)
  1. MINERALS NOS/VITAMINS NOS [Concomitant]
  2. AUBAGIO [Suspect]
     Active Substance: TERIFLUNOMIDE
     Indication: MULTIPLE SCLEROSIS
     Route: 048
     Dates: start: 20160701
  3. VITAMIN D [Concomitant]
     Active Substance: CHOLECALCIFEROL
  4. FOLIC ACID. [Concomitant]
     Active Substance: FOLIC ACID
  5. AUBAGIO [Suspect]
     Active Substance: TERIFLUNOMIDE
     Indication: MULTIPLE SCLEROSIS
     Route: 048

REACTIONS (5)
  - Influenza like illness [Unknown]
  - Intervertebral disc protrusion [Unknown]
  - Gastroenteritis viral [Unknown]
  - Vomiting [Unknown]
  - Nausea [Recovering/Resolving]

NARRATIVE: CASE EVENT DATE: 2016
